FAERS Safety Report 9038087 (Version 1)
Quarter: 2013Q1

REPORT INFORMATION
  Report Type: Report from Study
  Country: US (occurrence: US)
  Receive Date: 20130129
  Receipt Date: 20130129
  Transmission Date: 20140127
  Serious: No
  Sender: FDA-Public Use
  Company Number: US-ABBOTT-12P-163-0972869-00

PATIENT
  Sex: Male
  Weight: 90.8 kg

DRUGS (4)
  1. LUPRON DEPOT 7.5 MG [Suspect]
     Indication: PROSTATE CANCER
     Route: 030
     Dates: start: 201207
  2. UNKNOWN MEDICATION [Concomitant]
     Indication: HYPOTHYROIDISM
  3. UNKNOWN MEDICATION [Concomitant]
     Indication: BLOOD CHOLESTEROL INCREASED
  4. UNKNOWN WATER PILL [Concomitant]
     Indication: OEDEMA PERIPHERAL

REACTIONS (6)
  - Fatigue [Recovering/Resolving]
  - Somnolence [Recovering/Resolving]
  - Asthenia [Recovering/Resolving]
  - Fatigue [Unknown]
  - Somnolence [Unknown]
  - Asthenia [Unknown]
